FAERS Safety Report 10947897 (Version 2)
Quarter: 2015Q3

REPORT INFORMATION
  Report Type: Spontaneous
  Country: US (occurrence: US)
  Receive Date: 20150324
  Receipt Date: 20150828
  Transmission Date: 20151125
  Serious: Yes (Disabling)
  Sender: FDA-Public Use
  Company Number: US-UCBSA-2015008856

PATIENT
  Sex: Female

DRUGS (1)
  1. NEUPRO [Suspect]
     Active Substance: ROTIGOTINE
     Indication: PARKINSON^S DISEASE
     Dosage: 8 MG/24H, PATCH (EXPIRY DATE: 07-AUG-2016)

REACTIONS (2)
  - Macular hole [Not Recovered/Not Resolved]
  - Retinal telangiectasia [Not Recovered/Not Resolved]
